FAERS Safety Report 15966508 (Version 2)
Quarter: 2019Q2

REPORT INFORMATION
  Report Type: Spontaneous
  Country: US (occurrence: US)
  Receive Date: 20190215
  Receipt Date: 20190507
  Transmission Date: 20190711
  Serious: Yes (Other)
  Sender: FDA-Public Use
  Company Number: US-TAKEDA-2019TUS006067

PATIENT

DRUGS (6)
  1. PREVACID [Suspect]
     Active Substance: LANSOPRAZOLE
     Indication: PEPTIC ULCER
     Dosage: 30 MILLIGRAM
     Route: 048
     Dates: start: 20110519, end: 20150713
  2. NEXIUM 24HR [Suspect]
     Active Substance: ESOMEPRAZOLE MAGNESIUM
     Indication: PEPTIC ULCER
     Dosage: 20 MILLIGRAM
     Route: 048
     Dates: start: 20110519, end: 20150713
  3. PRILOSEC [Suspect]
     Active Substance: OMEPRAZOLE MAGNESIUM
     Indication: PEPTIC ULCER
     Dosage: 20 MILLIGRAM
     Route: 048
     Dates: start: 20110519, end: 20150713
  4. PREVACID 24 HR [Suspect]
     Active Substance: LANSOPRAZOLE
     Indication: PEPTIC ULCER
     Dosage: 15 MILLIGRAM
     Route: 048
     Dates: start: 20110519, end: 20150713
  5. NEXIUM [Suspect]
     Active Substance: ESOMEPRAZOLE MAGNESIUM
     Indication: PEPTIC ULCER
     Dosage: 40 MILLIGRAM
     Route: 048
     Dates: start: 20110519, end: 20150713
  6. OMEPRAZOLE. [Suspect]
     Active Substance: OMEPRAZOLE
     Indication: PEPTIC ULCER
     Dosage: 20 MILLIGRAM
     Route: 048
     Dates: start: 20110519, end: 20150713

REACTIONS (2)
  - Chronic kidney disease [Unknown]
  - Acute kidney injury [Unknown]

NARRATIVE: CASE EVENT DATE: 201605
